FAERS Safety Report 5670718-1 (Version None)
Quarter: 2008Q2

REPORT INFORMATION
  Report Type: 
  Country: None (occurrence: None)
  Receive Date: 20080305
  Receipt Date: 20070719
  Transmission Date: 20081010
  Serious: Yes (Other)
  Sender: FDA-Public Use
  Company Number: BDI-009784

PATIENT
  Age: 51 Year
  Sex: Female

DRUGS (2)
  1. ISOVUE-300 [Suspect]
     Indication: COMPUTERISED TOMOGRAM ABDOMEN
     Dosage: 150ML ONCE INTRAVENOUS
     Route: 042
     Dates: start: 20070620, end: 20070620
  2. ISOVUE-300 [Suspect]
     Indication: RENAL CYST
     Dosage: 150ML ONCE INTRAVENOUS
     Route: 042
     Dates: start: 20070620, end: 20070620

REACTIONS (6)
  - BLOOD PRESSURE INCREASED [None]
  - CHEST DISCOMFORT [None]
  - DYSPNOEA [None]
  - FEELING ABNORMAL [None]
  - FLUSHING [None]
  - SUPRAVENTRICULAR TACHYCARDIA [None]
